FAERS Safety Report 13978798 (Version 3)
Quarter: 2017Q4

REPORT INFORMATION
  Report Type: Spontaneous
  Country: FR (occurrence: FR)
  Receive Date: 20170915
  Receipt Date: 20171119
  Transmission Date: 20180321
  Serious: Yes (Other)
  Sender: FDA-Public Use
  Company Number: FR-MERCK KGAA-2026483

PATIENT
  Age: 67 Year
  Sex: Female

DRUGS (2)
  1. NOVOTHYROX [Suspect]
     Active Substance: LEVOTHYROXINE SODIUM
     Dates: start: 201708
  2. NOVOTHYROX [Suspect]
     Active Substance: LEVOTHYROXINE SODIUM
     Indication: AUTOIMMUNE THYROIDITIS

REACTIONS (13)
  - Bradycardia [None]
  - Fatigue [Not Recovered/Not Resolved]
  - Blood thyroid stimulating hormone increased [None]
  - Blood pressure increased [None]
  - Headache [None]
  - Neuralgia [None]
  - Nasal dryness [None]
  - Myalgia [Recovering/Resolving]
  - Depression [Not Recovered/Not Resolved]
  - Pain in extremity [None]
  - Dry mouth [None]
  - Arthralgia [Recovering/Resolving]
  - Anxiety [Not Recovered/Not Resolved]

NARRATIVE: CASE EVENT DATE: 201707
